FAERS Safety Report 4999221-9 (Version None)
Quarter: 2006Q2

REPORT INFORMATION
  Report Type: 
  Country: None (occurrence: None)
  Receive Date: 20060509
  Receipt Date: 20060424
  Transmission Date: 20061013
  Serious: Yes (Hospitalization, Other)
  Sender: FDA-Public Use
  Company Number: US200604004205

PATIENT
  Age: 87 Year
  Sex: Female

DRUGS (2)
  1. FORTEO [Suspect]
     Indication: OSTEOPOROSIS
     Dates: start: 20050301
  2. FORTEO [Concomitant]

REACTIONS (9)
  - ARTHROPATHY [None]
  - CONDITION AGGRAVATED [None]
  - CONSTIPATION [None]
  - FALL [None]
  - HAEMORRHAGE [None]
  - HIP ARTHROPLASTY [None]
  - MOBILITY DECREASED [None]
  - PHARMACEUTICAL PRODUCT COMPLAINT [None]
  - WRIST FRACTURE [None]
